FAERS Safety Report 4463071-2 (Version None)
Quarter: 2004Q3

REPORT INFORMATION
  Report Type: 
  Country: None (occurrence: None)
  Receive Date: 20040928
  Receipt Date: 20040913
  Transmission Date: 20050211
  Serious: Yes (Other)
  Sender: FDA-Public Use
  Company Number: M2004-1289

PATIENT
  Sex: Male

DRUGS (5)
  1. CIPROFLOXACIN 250MG TABLETS, UNKNOWN MANUFACTURER [Suspect]
     Indication: ARTHRITIS BACTERIAL
     Dosage: 500 MG TWICE DAILY
     Dates: start: 20040602, end: 20040623
  2. RIMACTANE 300 MG, CAPSULE [Suspect]
     Indication: ARTHRITIS BACTERIAL
     Dosage: 300 MG TWICE DAILY
     Dates: start: 20040602, end: 20040623
  3. PERGOLIDE MESYLATE [Concomitant]
  4. BENSERAZIDE HYDROCHLORIDE [Concomitant]
  5. TRIHEXYPHENIDYL HCL [Concomitant]

REACTIONS (4)
  - CONDITION AGGRAVATED [None]
  - DRUG INTERACTION [None]
  - EMOTIONAL DISTRESS [None]
  - PARKINSON'S DISEASE [None]
